FAERS Safety Report 7560584-1 (Version None)
Quarter: 2011Q2

REPORT INFORMATION
  Report Type: 
  Country: None (occurrence: None)
  Receive Date: 20110621
  Receipt Date: 20110103
  Transmission Date: 20111010
  Serious: No
  Sender: FDA-Public Use
  Company Number: US-ASTRAZENECA-2011SE00285

PATIENT
  Age: 69 Year
  Sex: Female
  Weight: 88.5 kg

DRUGS (6)
  1. NOVALOG [Concomitant]
  2. AMYLOR-HCTZ [Concomitant]
  3. LIPITOR [Concomitant]
  4. CORGARD [Concomitant]
  5. ENTOCORT EC [Suspect]
     Indication: CROHN'S DISEASE
     Route: 048
  6. LANTUS [Concomitant]

REACTIONS (7)
  - DYSSTASIA [None]
  - ARTHRALGIA [None]
  - INCORRECT DOSE ADMINISTERED [None]
  - WEIGHT INCREASED [None]
  - HYPOKINESIA [None]
  - SINUSITIS [None]
  - BLOOD GLUCOSE DECREASED [None]
